FAERS Safety Report 6516135-3 (Version None)
Quarter: 2009Q4

REPORT INFORMATION
  Report Type: 
  Country: None (occurrence: None)
  Receive Date: 20091223
  Receipt Date: 20091214
  Transmission Date: 20100525
  Serious: Yes (Other)
  Sender: FDA-Public Use
  Company Number: FI-JNJFOC-20091204062

PATIENT
  Age: 95 Year
  Sex: Male

DRUGS (11)
  1. TAVANIC [Suspect]
     Indication: WOUND INFECTION
     Route: 048
     Dates: start: 20091103
  2. AMARYL [Suspect]
     Indication: DRUG USE FOR UNKNOWN INDICATION
     Route: 065
     Dates: start: 20090630, end: 20091111
  3. PRIMASPAN [Concomitant]
     Route: 065
  4. FURESIS [Concomitant]
     Route: 065
  5. ZANIDIP [Concomitant]
     Route: 065
  6. PANADOL FORTE [Concomitant]
     Route: 065
  7. ZOLT [Concomitant]
     Route: 065
  8. OMNIC [Concomitant]
     Route: 065
  9. OXYCONTIN [Concomitant]
     Route: 065
  10. DUPHALAC [Concomitant]
     Route: 065
  11. KLEXANE [Concomitant]
     Route: 065

REACTIONS (4)
  - APHASIA [None]
  - BLOOD GLUCOSE DECREASED [None]
  - ENURESIS [None]
  - HEMIPARESIS [None]
